FAERS Safety Report 5259499-3 (Version None)
Quarter: 2007Q1

REPORT INFORMATION
  Report Type: 
  Country: None (occurrence: None)
  Receive Date: 20070306
  Receipt Date: 20070220
  Transmission Date: 20070707
  Serious: Yes (Death)
  Sender: FDA-Public Use
  Company Number: 2007AL000734

PATIENT
  Age: 61 Year
  Sex: Male

DRUGS (13)
  1. MIRTAZAPINE [Suspect]
     Dosage: PO
     Route: 048
  2. FENTANYL [Concomitant]
  3. TIZANIDINE HCL [Concomitant]
  4. LORAZEPAM [Concomitant]
  5. DEPAKOTE [Concomitant]
  6. ZOLPIDEM [Concomitant]
  7. ESCITALOPRAM [Concomitant]
  8. ACETAMINOPHEN AND HYDROCODONE BITARTRATE [Concomitant]
  9. DOXEPIN HCL [Concomitant]
  10. CELECOXIB [Concomitant]
  11. NEURONTIN [Concomitant]
  12. ZONISAMIDE [Concomitant]
  13. MARIJUANA [Concomitant]

REACTIONS (7)
  - DRUG TOXICITY [None]
  - INCORRECT DOSE ADMINISTERED [None]
  - INFLAMMATION [None]
  - LIVER DISORDER [None]
  - LOSS OF CONSCIOUSNESS [None]
  - PULMONARY OEDEMA [None]
  - VISCERAL CONGESTION [None]
